FAERS Safety Report 15332845 (Version 1)
Quarter: 2018Q3

REPORT INFORMATION
  Report Type: Report from Study
  Country: DE (occurrence: DE)
  Receive Date: 20180830
  Receipt Date: 20180830
  Transmission Date: 20181010
  Serious: Yes (Hospitalization)
  Sender: FDA-Public Use
  Company Number: DE-ROCHE-2118351

PATIENT
  Age: 55 Year
  Sex: Male
  Weight: 96 kg

DRUGS (13)
  1. COBIMETINIB. [Suspect]
     Active Substance: COBIMETINIB
     Indication: MALIGNANT MELANOMA
     Dosage: DATE OF MOST RECENT DOSE OF COBIMETINIB: 02/MAY/2018 (60 MG)?THREE, 20 MG TABLETS ONCE A DAY (QD) ON
     Route: 048
     Dates: start: 20170823
  2. IBUPROFEN. [Concomitant]
     Active Substance: IBUPROFEN
     Indication: PYREXIA
  3. PANTOPRAZOL [Concomitant]
     Active Substance: PANTOPRAZOLE SODIUM
     Dosage: FOR STOMACH PROTECTION
     Route: 048
     Dates: start: 20170914
  4. BEPANTHEN NOSE OINTMENT [Concomitant]
     Indication: INFLUENZA
     Dosage: DOSE: 50 OTHER
     Route: 048
     Dates: start: 20180219
  5. XYLOMETAZOLIN?HYDROCHLORID [Concomitant]
     Indication: NASAL CONGESTION
     Dosage: 0.05 (UNIT: OTHER), XYLOMETAZOLINHYDROCHLORID (NOSE DROPS)(INTERMITTENT)
     Route: 065
  6. BETAGALEN [Concomitant]
     Indication: RASH
     Dosage: BETAGALEN OINTMENT (INTERMITTENT)
     Route: 061
     Dates: start: 20170914
  7. VEMURAFENIB. [Suspect]
     Active Substance: VEMURAFENIB
     Indication: MALIGNANT MELANOMA
     Dosage: DATE OF MOST RECENT DOSE OF VEMURAFENIB: 02/MAY/2018,?TOTAL NUMBER OF TABLETS OF LAST VEMURAFENIB AD
     Route: 048
     Dates: start: 20170823
  8. MUCOSOLVAN [Concomitant]
     Active Substance: AMBROXOL HYDROCHLORIDE
     Indication: INFLUENZA
     Route: 048
     Dates: start: 20180219
  9. ALOE VERA [Concomitant]
     Active Substance: ALOE VERA LEAF
     Dosage: ALOE VERA (INTERMITTENT)
     Route: 061
     Dates: start: 20170827
  10. THIAMAZOL [Concomitant]
     Active Substance: METHIMAZOLE
     Indication: HYPERTHYROIDISM
     Route: 048
     Dates: start: 20171206
  11. IBUPROFEN. [Concomitant]
     Active Substance: IBUPROFEN
     Indication: ARTHRALGIA
     Route: 048
     Dates: start: 20170914
  12. ALOE VERA [Concomitant]
     Active Substance: ALOE VERA LEAF
     Indication: SOLAR DERMATITIS
     Dosage: BETAGALEN OINTMENT (INTERMITTENT)
     Route: 061
     Dates: start: 20170914
  13. ATEZOLIZUMAB. [Suspect]
     Active Substance: ATEZOLIZUMAB
     Indication: MALIGNANT MELANOMA
     Dosage: DATE OF MOST RECENT DOSE OF ATEZOLIZUMAB 264 ML PRIOR TO SAE ONSET: 18/APR/2018, DAY 1 AND 15
     Route: 042
     Dates: start: 20170920

REACTIONS (1)
  - Acute kidney injury [Recovered/Resolved]

NARRATIVE: CASE EVENT DATE: 20180502
